FAERS Safety Report 20499756 (Version 1)
Quarter: 2022Q1

REPORT INFORMATION
  Report Type: Spontaneous
  Country: US (occurrence: None)
  Receive Date: 20220222
  Receipt Date: 20220222
  Transmission Date: 20220423
  Serious: Yes (Other)
  Sender: FDA-Public Use
  Company Number: US-ROCHE-3024693

PATIENT
  Sex: Female
  Weight: 56.750 kg

DRUGS (3)
  1. VALCYTE [Suspect]
     Active Substance: VALGANCICLOVIR HYDROCHLORIDE
     Indication: Neuropsychiatric syndrome
     Route: 065
     Dates: start: 202105
  2. CLONIDINE [Concomitant]
     Active Substance: CLONIDINE
     Route: 048
  3. BIRTH CONTROL PILL (UNK INGREDIENTS) [Concomitant]
     Route: 048

REACTIONS (7)
  - Intentional product use issue [Unknown]
  - Nausea [Not Recovered/Not Resolved]
  - Vomiting [Unknown]
  - Chills [Recovered/Resolved]
  - COVID-19 [Not Recovered/Not Resolved]
  - Feeling drunk [Unknown]
  - Precancerous skin lesion [Not Recovered/Not Resolved]
